FAERS Safety Report 9854128 (Version 1)
Quarter: 2014Q1

REPORT INFORMATION
  Report Type: Spontaneous
  Country: US (occurrence: US)
  Receive Date: 20140129
  Receipt Date: 20140129
  Transmission Date: 20141002
  Serious: Yes (Death, Hospitalization, Other)
  Sender: FDA-Public Use
  Company Number: US-ROCHE-1341292

PATIENT
  Age: 14 Year
  Sex: Female

DRUGS (10)
  1. ALTEPLASE [Suspect]
     Indication: ILIAC ARTERY OCCLUSION
     Dosage: ABANDONED AFTER LESS THAN 24 HOURS
     Route: 013
  2. ALTEPLASE [Suspect]
     Indication: FEMORAL ARTERY OCCLUSION
  3. HEPARIN [Suspect]
     Indication: ILIAC ARTERY OCCLUSION
     Route: 065
  4. HEPARIN [Suspect]
     Indication: FEMORAL ARTERY OCCLUSION
  5. DEFEROXAMINE [Concomitant]
     Indication: HAEMOSIDEROSIS
     Route: 058
  6. AMPHOTERICIN B [Concomitant]
     Indication: FUNGAL INFECTION
  7. MICAFUNGIN [Concomitant]
     Indication: FUNGAL INFECTION
  8. POSACONAZOLE [Concomitant]
     Indication: FUNGAL INFECTION
  9. VORICONAZOLE [Concomitant]
     Indication: FUNGAL INFECTION
  10. TERBINAFINE [Concomitant]
     Indication: FUNGAL INFECTION

REACTIONS (2)
  - Pythium insidiosum infection [Fatal]
  - Procedural haemorrhage [Unknown]
